FAERS Safety Report 8909650 (Version 1)
Quarter: 2012Q4

REPORT INFORMATION
  Report Type: Spontaneous
  Country: US (occurrence: None)
  Receive Date: 20121109
  Receipt Date: 20121109
  Transmission Date: 20130627
  Serious: Yes (Other)
  Sender: FDA-Public Use
  Company Number: TPA2012A08739

PATIENT
  Age: 54 Year
  Sex: Male
  Weight: 99.79 kg

DRUGS (1)
  1. ACTOS (PIOGLITAZONE HYDROCHLORIDE) [Suspect]
     Dates: start: 1999, end: 201208

REACTIONS (6)
  - Transitional cell carcinoma [None]
  - Adrenal adenoma [None]
  - Calculus urinary [None]
  - Nocturia [None]
  - Benign prostatic hyperplasia [None]
  - Peyronie^s disease [None]
